FAERS Safety Report 6526661-9 (Version None)
Quarter: 2009Q4

REPORT INFORMATION
  Report Type: 
  Country: None (occurrence: None)
  Receive Date: 20091214
  Receipt Date: 20081125
  Transmission Date: 20100525
  Serious: Yes (Hospitalization)
  Sender: FDA-Public Use
  Company Number: 599377

PATIENT
  Age: 41 Year
  Sex: Female

DRUGS (2)
  1. PEGASYS [Suspect]
     Indication: HEPATITIS C VIRUS TEST
     Dosage: 180 UG
     Dates: start: 20070901, end: 20080901
  2. COPEGUS [Suspect]
     Indication: HEPATITIS C VIRUS TEST
     Dosage: 1000 MG ORAL
     Route: 048
     Dates: start: 20070901, end: 20080901

REACTIONS (1)
  - MENTAL DISORDER [None]
